FAERS Safety Report 8941147 (Version 1)
Quarter: 2012Q4

REPORT INFORMATION
  Report Type: 
  Country: US (occurrence: US)
  Receive Date: 20121203
  Receipt Date: 20121203
  Transmission Date: 20130627
  Serious: Yes (Other)
  Sender: FDA-Public Use
  Company Number: US-BAYER-2012-126010

PATIENT
  Age: 53 Year
  Sex: Female
  Weight: 63 kg

DRUGS (6)
  1. MAGNESIUM HYDROXIDE [Suspect]
     Indication: CONSTIPATION
     Dosage: 3 TBSP, QD
     Route: 048
     Dates: start: 20121121, end: 20121128
  2. ZYRTEK [Concomitant]
  3. SYNTHROID [Concomitant]
  4. B12 [Concomitant]
  5. CALCIUM [Concomitant]
  6. FLINTSTONES [Concomitant]

REACTIONS (4)
  - Sensation of foreign body [Not Recovered/Not Resolved]
  - Swelling face [Not Recovered/Not Resolved]
  - Urticaria [Not Recovered/Not Resolved]
  - Pyrexia [Not Recovered/Not Resolved]
